FAERS Safety Report 5822389-9 (Version None)
Quarter: 2008Q3

REPORT INFORMATION
  Report Type: 
  Country: None (occurrence: None)
  Receive Date: 20080721
  Receipt Date: 20080709
  Transmission Date: 20090109
  Serious: Yes (Hospitalization)
  Sender: FDA-Public Use
  Company Number: 2008SP014496

PATIENT
  Age: 53 Year
  Sex: Female

DRUGS (1)
  1. BETAMETHASONE SODIUM PHOSPHATE [Suspect]
     Indication: SYSTEMIC LUPUS ERYTHEMATOSUS
     Dosage: 4 MG QD PO
     Route: 048
     Dates: start: 19980101, end: 20060101

REACTIONS (13)
  - BLOOD UREA INCREASED [None]
  - CELLULITIS [None]
  - CULTURE POSITIVE [None]
  - FALL [None]
  - HEPATIC CIRRHOSIS [None]
  - IMPAIRED HEALING [None]
  - INFECTION SUSCEPTIBILITY INCREASED [None]
  - LIMB INJURY [None]
  - PLATELET COUNT DECREASED [None]
  - PROTEIN URINE PRESENT [None]
  - PURULENCE [None]
  - STAPHYLOCOCCAL INFECTION [None]
  - SYNOVITIS [None]
